FAERS Safety Report 24440648 (Version 1)
Quarter: 2024Q4

REPORT INFORMATION
  Report Type: Spontaneous
  Country: US (occurrence: US)
  Receive Date: 20241016
  Receipt Date: 20241016
  Transmission Date: 20250115
  Serious: Yes (Hospitalization, Other)
  Sender: SANDOZ
  Company Number: US-SANDOZ-SDZ2024US086259

PATIENT
  Age: 12 Year
  Sex: Female

DRUGS (3)
  1. ALBUTEROL SULFATE [Suspect]
     Active Substance: ALBUTEROL SULFATE
     Indication: Asthma prophylaxis
     Dosage: 2.5 MG/3 ML,NEBULIZER
     Route: 065
  2. ALBUTEROL\IPRATROPIUM [Suspect]
     Active Substance: ALBUTEROL\IPRATROPIUM
     Indication: Asthma prophylaxis
     Dosage: 0.5?2.5 MG/3 ML
     Route: 065
  3. METHYLPREDNISOLONE [Suspect]
     Active Substance: METHYLPREDNISOLONE
     Indication: Asthma prophylaxis
     Dosage: 40 MG
     Route: 065

REACTIONS (1)
  - Long QT syndrome [Recovering/Resolving]
